FAERS Safety Report 8317679-4 (Version None)
Quarter: 2012Q2

REPORT INFORMATION
  Report Type: 
  Country: None (occurrence: None)
  Receive Date: 20120427
  Receipt Date: 20111111
  Transmission Date: 20120825
  Serious: No
  Sender: FDA-Public Use
  Company Number: US-GLAXOSMITHKLINE-A0953084A

PATIENT
  Sex: Female

DRUGS (3)
  1. SUMATRIPTAN SUCCINATE [Suspect]
     Route: 065
  2. AMERGE [Suspect]
     Route: 065
  3. FROVA [Suspect]
     Route: 065

REACTIONS (1)
  - DRUG INEFFECTIVE [None]
